FAERS Safety Report 15109937 (Version 1)
Quarter: 2018Q3

REPORT INFORMATION
  Report Type: Spontaneous
  Country: CH (occurrence: CH)
  Receive Date: 20180705
  Receipt Date: 20180705
  Transmission Date: 20181010
  Serious: Yes (Other)
  Sender: FDA-Public Use
  Company Number: CH-LPDUSPRD-20181156

PATIENT
  Age: 0 Year
  Sex: Female
  Weight: .86 kg

DRUGS (8)
  1. ISONIAZIDE [Suspect]
     Active Substance: ISONIAZID
     Dosage: 300 MG (300 MG, 1 IN 1 D)
     Route: 064
     Dates: start: 20171130, end: 20180206
  2. EUTHYROX [Suspect]
     Active Substance: LEVOTHYROXINE SODIUM
     Dosage: 100 MCG (100 MCG, 1 IN 1 D)
     Route: 064
     Dates: start: 2017
  3. NOVORAPID [Suspect]
     Active Substance: INSULIN ASPART
     Dosage: 12 IU (12 IU, 1 IN 1 D)
     Route: 064
     Dates: start: 20180222
  4. NEXIUM [Suspect]
     Active Substance: ESOMEPRAZOLE MAGNESIUM
     Dosage: 1 IN 1 D
     Route: 064
     Dates: end: 20180206
  5. FERINJECT [Suspect]
     Active Substance: FERRIC CARBOXYMALTOSE
     Dosage: UNKNOWN
     Route: 064
     Dates: start: 20180110, end: 20180119
  6. CORGARD [Suspect]
     Active Substance: NADOLOL
     Dosage: UNKNOWN
     Route: 064
     Dates: start: 2017
  7. URSOFALK [Suspect]
     Active Substance: URSODIOL
     Dosage: UNKNOWN
     Route: 064
     Dates: start: 201802
  8. ISOPHANE INSULIN [Suspect]
     Active Substance: INSULIN NOS
     Dosage: 6 IU (6 IU, IN THE EVENING)
     Route: 064
     Dates: start: 20180215

REACTIONS (6)
  - Premature baby [Unknown]
  - Neonatal respiratory distress syndrome [Unknown]
  - Jaundice neonatal [Unknown]
  - Bradypnoea [Unknown]
  - Foetal exposure during pregnancy [Unknown]
  - Intraventricular haemorrhage neonatal [Unknown]

NARRATIVE: CASE EVENT DATE: 20180110
